FAERS Safety Report 10025871 (Version 3)
Quarter: 2014Q2

REPORT INFORMATION
  Report Type: Spontaneous
  Country: IT (occurrence: None)
  Receive Date: 20140314
  Receipt Date: 20140512
  Transmission Date: 20141212
  Serious: Yes (Hospitalization)
  Sender: FDA-Public Use
  Company Number: AUR-APL-2014-02699

PATIENT
  Age: 91 Year
  Sex: Female

DRUGS (5)
  1. AMOXICILLIN [Suspect]
     Indication: BRONCHITIS
     Dosage: (2 GM, CYCLICAL), ORAL
     Route: 048
     Dates: start: 20140117, end: 20140118
  2. COUMADIN (WARFARIN SODIUM) [Concomitant]
  3. ACCUPRIN (QUINAPRIL HYDROCHLORIDE) [Concomitant]
  4. TRINIPLAS (GLYCERYL TRINITRATE) [Concomitant]
  5. LASIX (FUROSEMIDE) [Concomitant]

REACTIONS (2)
  - Dyspnoea [None]
  - Generalised erythema [None]
